FAERS Safety Report 13506049 (Version 1)
Quarter: 2017Q2

REPORT INFORMATION
  Report Type: Spontaneous
  Country: US (occurrence: US)
  Receive Date: 20170502
  Receipt Date: 20170502
  Transmission Date: 20170830
  Serious: Yes (Hospitalization, Other)
  Sender: FDA-Public Use
  Company Number: US-ROCHE-1418244

PATIENT
  Age: 35 Year
  Sex: Male

DRUGS (4)
  1. 5-FU [Concomitant]
     Active Substance: FLUOROURACIL
     Dosage: CYCLE 11, DAY1
     Route: 065
     Dates: start: 20140429
  2. AVASTIN [Suspect]
     Active Substance: BEVACIZUMAB
     Indication: COLORECTAL CANCER
     Route: 065
  3. OXALIPLATIN. [Concomitant]
     Active Substance: OXALIPLATIN
     Dosage: CYCLE 11, DAY1
     Route: 065
     Dates: start: 20140429
  4. FOLINIC ACID [Concomitant]
     Active Substance: LEUCOVORIN

REACTIONS (8)
  - Visual impairment [Unknown]
  - Abdominal pain [Unknown]
  - Aphasia [Unknown]
  - Mental status changes [Unknown]
  - Ischaemic stroke [Unknown]
  - Coordination abnormal [Unknown]
  - Leukocytosis [Unknown]
  - Embolism [Unknown]
